FAERS Safety Report 9722925 (Version 1)
Quarter: 2013Q4

REPORT INFORMATION
  Report Type: Spontaneous
  Country: JP (occurrence: JP)
  Receive Date: 20131202
  Receipt Date: 20131202
  Transmission Date: 20140711
  Serious: Yes (Other)
  Sender: FDA-Public Use
  Company Number: PHHY2013JP138479

PATIENT
  Age: 51 Year
  Sex: Female

DRUGS (1)
  1. NEORAL [Suspect]
     Indication: BONE MARROW TRANSPLANT
     Route: 048
     Dates: end: 20131124

REACTIONS (3)
  - Histiocytosis haematophagic [Unknown]
  - Condition aggravated [Unknown]
  - Oral administration complication [Unknown]
